FAERS Safety Report 6503094-2 (Version None)
Quarter: 2009Q4

REPORT INFORMATION
  Report Type: 
  Country: None (occurrence: None)
  Receive Date: 20091217
  Receipt Date: 20091208
  Transmission Date: 20100525
  Serious: Yes (Hospitalization)
  Sender: FDA-Public Use
  Company Number: PHHY2009JP45043

PATIENT
  Age: 51 Year
  Sex: Male

DRUGS (4)
  1. VOLTAREN [Suspect]
     Indication: MUSCULOSKELETAL PAIN
     Dosage: 25 MG, ONCE/SINGLE
     Route: 048
     Dates: start: 20091013, end: 20091013
  2. TOWARAT [Concomitant]
     Dosage: 40 MG
     Route: 048
  3. ENALAPRIL MALEATE [Concomitant]
     Dosage: 10 MG, UNK
     Route: 048
  4. MOHRUS TAPE [Concomitant]
     Dosage: UNK
     Route: 062

REACTIONS (7)
  - ALANINE AMINOTRANSFERASE INCREASED [None]
  - ANAPHYLACTIC SHOCK [None]
  - ASPARTATE AMINOTRANSFERASE INCREASED [None]
  - ASTHENIA [None]
  - BLOOD POTASSIUM DECREASED [None]
  - DYSSTASIA [None]
  - RHABDOMYOLYSIS [None]
